FAERS Safety Report 9823120 (Version 1)
Quarter: 2014Q1

REPORT INFORMATION
  Report Type: Spontaneous
  Country: US (occurrence: US)
  Receive Date: 20140116
  Receipt Date: 20140116
  Transmission Date: 20141002
  Serious: No
  Sender: FDA-Public Use
  Company Number: US-GILEAD-2011-0036655

PATIENT
  Age: 71 Year
  Sex: Female

DRUGS (3)
  1. LETAIRIS [Suspect]
     Indication: PRODUCT USED FOR UNKNOWN INDICATION
     Route: 048
     Dates: start: 20110128
  2. TYLENOL [Concomitant]
     Indication: TOOTH EXTRACTION
  3. ADVIL [Concomitant]
     Indication: TOOTH EXTRACTION

REACTIONS (1)
  - Liver function test abnormal [Unknown]
